FAERS Safety Report 5659706-9 (Version None)
Quarter: 2008Q1

REPORT INFORMATION
  Report Type: 
  Country: None (occurrence: None)
  Receive Date: 20080311
  Receipt Date: 20070627
  Transmission Date: 20080703
  Serious: No
  Sender: FDA-Public Use
  Company Number: US-BAYER-200712054BCC

PATIENT
  Age: 70 Year
  Sex: Female
  Weight: 73 kg

DRUGS (12)
  1. ALEVE [Suspect]
     Indication: MULTIPLE ALLERGIES
     Dosage: TOTAL DAILY DOSE: 220 MG  UNIT DOSE: 220 MG
     Route: 048
     Dates: start: 20070623, end: 20070624
  2. AMLODIPINE [Concomitant]
  3. FUROSEMIDE [Concomitant]
  4. HYDROXYCHLOROQUINE SULFATE [Concomitant]
  5. PROTONIX [Concomitant]
  6. FLUOXETINE [Concomitant]
  7. ASPIRIN [Concomitant]
  8. VYTORIN [Concomitant]
  9. METFORMIN HCL [Concomitant]
  10. LISINOPRIL [Concomitant]
  11. ATENOLOL [Concomitant]
  12. AMBIEN CR [Concomitant]

REACTIONS (5)
  - ANGIOEDEMA [None]
  - CHAPPED LIPS [None]
  - LIP SWELLING [None]
  - PHARYNGOLARYNGEAL PAIN [None]
  - SWOLLEN TONGUE [None]
